FAERS Safety Report 24923918 (Version 1)
Quarter: 2025Q1

REPORT INFORMATION
  Report Type: Spontaneous
  Country: US (occurrence: US)
  Receive Date: 20250204
  Receipt Date: 20250204
  Transmission Date: 20250409
  Serious: Yes (Hospitalization)
  Sender: PFIZER
  Company Number: US-PFIZER INC-202500021662

PATIENT
  Age: 38 Year
  Sex: Male

DRUGS (1)
  1. VELSIPITY [Suspect]
     Active Substance: ETRASIMOD ARGININE
     Dosage: 2 MG TABLET, TAKE 1 TABLET (2 MG TOTAL) BY MOUTH DAILY
     Route: 048

REACTIONS (1)
  - Therapeutic product effect incomplete [Unknown]
